FAERS Safety Report 4429970-2 (Version None)
Quarter: 2004Q3

REPORT INFORMATION
  Report Type: 
  Country: None (occurrence: None)
  Receive Date: 20040820
  Receipt Date: 20040524
  Transmission Date: 20050211
  Serious: Yes (Life-Threatening, Hospitalization)
  Sender: FDA-Public Use
  Company Number: PHRM2004FR01942

PATIENT
  Age: 80 Year
  Sex: Female
  Weight: 74 kg

DRUGS (6)
  1. COTAREG [Suspect]
     Indication: HYPERTENSION
     Dosage: 1 DF, QD
     Route: 048
     Dates: end: 20040519
  2. CORDARONE [Suspect]
     Indication: ATRIAL FIBRILLATION
     Dosage: 2 DF WEEKLY
  3. LASIX [Suspect]
     Route: 048
  4. HEMIGOXINE NATIVELLE [Concomitant]
  5. NICARDIPINE HCL [Concomitant]
     Route: 048
  6. ASPIRIN [Concomitant]

REACTIONS (6)
  - CARDIAC PACEMAKER INSERTION [None]
  - FALL [None]
  - HYPOKALAEMIA [None]
  - LOSS OF CONSCIOUSNESS [None]
  - SYNCOPE [None]
  - TORSADE DE POINTES [None]
